FAERS Safety Report 9547517 (Version 3)
Quarter: 2014Q1

REPORT INFORMATION
  Report Type: Spontaneous
  Country: US (occurrence: None)
  Receive Date: 20130920
  Receipt Date: 20140228
  Transmission Date: 20141002
  Serious: Yes (Congenital Anomaly, Other)
  Sender: FDA-Public Use
  Company Number: AUR-APL-2013-07773

PATIENT
  Sex: 0

DRUGS (8)
  1. ZIDOVUDINE [Suspect]
     Indication: ANTIRETROVIRAL THERAPY
     Route: 064
  2. DARUNAVIR (PREZISTA) [Suspect]
     Indication: ANTIRETROVIRAL THERAPY
     Route: 064
  3. INTELENCE [Suspect]
     Indication: ANTIRETROVIRAL THERAPY
     Route: 064
  4. ISENTRESS [Suspect]
     Indication: ANTIRETROVIRAL THERAPY
     Route: 064
  5. NORVIR [Suspect]
     Indication: ANTIRETROVIRAL THERAPY
     Route: 064
  6. TRUVADA [Suspect]
     Indication: ANTIRETROVIRAL THERAPY
     Dosage: 1 DOSAGE FORM/DAY, TRANSPLACENTAL
     Route: 064
  7. APTIVUS [Suspect]
     Indication: ANTIRETROVIRAL THERAPY
     Route: 064
  8. INSULIN ASPART (INSULIN ASPART) [Suspect]
     Indication: GESTATIONAL DIABETES
     Route: 064

REACTIONS (16)
  - Foetal exposure during pregnancy [None]
  - Tethered cord syndrome [None]
  - Lipodystrophy acquired [None]
  - Genitalia external ambiguous [None]
  - Gastrointestinal disorder congenital [None]
  - Exomphalos [None]
  - Caudal regression syndrome [None]
  - Meconium stain [None]
  - Meningomyelocele [None]
  - Sepsis [None]
  - Blood iron decreased [None]
  - Umbilical cord abnormality [None]
  - Erythema [None]
  - Congenital musculoskeletal anomaly [None]
  - Cloacal exstrophy [None]
  - Bladder agenesis [None]
